FAERS Safety Report 6422194-9 (Version None)
Quarter: 2009Q4

REPORT INFORMATION
  Report Type: 
  Country: None (occurrence: None)
  Receive Date: 20091030
  Receipt Date: 20091026
  Transmission Date: 20100525
  Serious: Yes (Death)
  Sender: FDA-Public Use
  Company Number: PHHY2009MX46570

PATIENT
  Age: 69 Year
  Sex: Female

DRUGS (1)
  1. DIOVAN [Suspect]
     Dosage: 1 TABLET (160 MG) PER DAY
     Route: 048
     Dates: start: 20090301, end: 20090701

REACTIONS (1)
  - RENAL FAILURE [None]
